FAERS Safety Report 18515831 (Version 1)
Quarter: 2020Q4

REPORT INFORMATION
  Report Type: Spontaneous
  Country: NZ (occurrence: NZ)
  Receive Date: 20201118
  Receipt Date: 20201118
  Transmission Date: 20210114
  Serious: Yes (Life-Threatening, Hospitalization, Other)
  Sender: FDA-Public Use
  Company Number: NZ-ACCORD-208368

PATIENT
  Age: 74 Year
  Sex: Female

DRUGS (6)
  1. ATORVASTATIN [Concomitant]
     Active Substance: ATORVASTATIN
     Indication: LEFT VENTRICULAR FAILURE
  2. CILAZAPRIL [Concomitant]
     Active Substance: CILAZAPRIL ANHYDROUS
     Indication: LEFT VENTRICULAR FAILURE
     Dosage: DRUG ADMIN DURATION (STOPPED TWO DAYS PRIOR TO ONE MONTH)
  3. CARVEDILOL/CARVEDILOL HYDROCHLODRIDE [Concomitant]
     Active Substance: CARVEDILOL HYDROCHLORIDE
     Indication: LEFT VENTRICULAR FAILURE
     Dosage: DRUG ADMIN DURATION (1 MONTH + ONE DAY)
  4. OMEPRAZOLE. [Concomitant]
     Active Substance: OMEPRAZOLE
  5. COLECALCIFEROL [Concomitant]
     Active Substance: CHOLECALCIFEROL
  6. FUROSEMIDE. [Suspect]
     Active Substance: FUROSEMIDE
     Indication: LEFT VENTRICULAR FAILURE
     Dosage: FUROSEMIDE TITRATION

REACTIONS (2)
  - Dehydration [Unknown]
  - Acute kidney injury [Recovering/Resolving]
